FAERS Safety Report 7952846-0 (Version None)
Quarter: 2011Q4

REPORT INFORMATION
  Report Type: 
  Country: None (occurrence: None)
  Receive Date: 20111201
  Receipt Date: 20111128
  Transmission Date: 20120403
  Serious: Yes (Hospitalization, Other)
  Sender: FDA-Public Use
  Company Number: US-TEVA-311038USA

PATIENT
  Age: 59 Year
  Sex: Female

DRUGS (3)
  1. PROMETHAZINE [Suspect]
     Route: 042
  2. HYDROMORPHONE HCL [Suspect]
  3. MEPERIDINE HCL [Suspect]

REACTIONS (2)
  - RESPIRATORY FAILURE [None]
  - PICKWICKIAN SYNDROME [None]
